FAERS Safety Report 15538590 (Version 1)
Quarter: 2018Q4

REPORT INFORMATION
  Report Type: Spontaneous
  Country: GB (occurrence: GB)
  Receive Date: 20181022
  Receipt Date: 20181022
  Transmission Date: 20190205
  Serious: Yes (Other)
  Sender: FDA-Public Use
  Company Number: PHHY2018GB083602

PATIENT
  Sex: Male

DRUGS (1)
  1. SANDOSTATIN LAR DEPOT [Suspect]
     Active Substance: OCTREOTIDE ACETATE
     Indication: PANCREATIC NEUROENDOCRINE TUMOUR METASTATIC
     Dosage: 30 MG, Q4W
     Route: 065

REACTIONS (7)
  - Abdominal distension [Unknown]
  - Anxiety [Unknown]
  - Fatigue [Unknown]
  - Disturbance in attention [Unknown]
  - Nausea [Unknown]
  - Depression [Unknown]
  - Benign hepatic neoplasm [Unknown]
